FAERS Safety Report 25024077 (Version 1)
Quarter: 2025Q1

REPORT INFORMATION
  Report Type: Spontaneous
  Country: US (occurrence: US)
  Receive Date: 20250228
  Receipt Date: 20250228
  Transmission Date: 20250409
  Serious: No
  Sender: BAYER HEALTHCARE PHARMACEUTICALS INC.
  Company Number: US-BAYER-2025A026911

PATIENT
  Age: 43 Year
  Sex: Male

DRUGS (6)
  1. MOXIFLOXACIN [Suspect]
     Active Substance: MOXIFLOXACIN
     Indication: Tuberculosis
     Route: 048
  2. ISONIAZID [Concomitant]
     Active Substance: ISONIAZID
  3. PYRAZINAMIDE [Concomitant]
     Active Substance: PYRAZINAMIDE
  4. ETHAMBUTOL [Concomitant]
     Active Substance: ETHAMBUTOL HYDROCHLORIDE
  5. MOXIFLOXACIN [Concomitant]
     Active Substance: MOXIFLOXACIN
  6. AMIKACIN [Concomitant]
     Active Substance: AMIKACIN

REACTIONS (2)
  - Product use in unapproved indication [None]
  - Product prescribing issue [None]
